FAERS Safety Report 6816901-0 (Version None)
Quarter: 2010Q2

REPORT INFORMATION
  Report Type: 
  Country: None (occurrence: None)
  Receive Date: 20100630
  Receipt Date: 20100615
  Transmission Date: 20101027
  Serious: Yes (Other)
  Sender: FDA-Public Use
  Company Number: 1000014747

PATIENT
  Age: 33 Year
  Sex: Female
  Weight: 92.8 kg

DRUGS (1)
  1. DINOPROSTONE (DINOPROSTONE) (VAGINAL INSERT) [Suspect]
     Indication: LABOUR INDUCTION
     Dosage: 10 MG, VAGINAL
     Route: 067
     Dates: start: 20100613, end: 20100613

REACTIONS (3)
  - DRUG EXPOSURE DURING PREGNANCY [None]
  - SHOCK [None]
  - UTERINE CONTRACTIONS ABNORMAL [None]
